FAERS Safety Report 5396184-1 (Version None)
Quarter: 2007Q3

REPORT INFORMATION
  Report Type: 
  Country: None (occurrence: None)
  Receive Date: 20070725
  Receipt Date: 20070711
  Transmission Date: 20080115
  Serious: Yes (Death, Hospitalization)
  Sender: FDA-Public Use
  Company Number: PHBS2007JP10118

PATIENT
  Age: 75 Year
  Sex: Female

DRUGS (5)
  1. ZOMETA [Suspect]
     Indication: METASTASES TO BONE
     Dosage: 4 MG, UNK
     Route: 042
     Dates: start: 20060517, end: 20060719
  2. AREDIA [Suspect]
     Indication: METASTASES TO BONE
     Dates: start: 20060201
  3. TAXOTERE [Suspect]
     Indication: THYMOMA MALIGNANT
     Dosage: 40 G, UNK
     Route: 042
     Dates: start: 20060107, end: 20060719
  4. GEMZAR [Suspect]
     Indication: THYMOMA MALIGNANT
     Dosage: 120 G, UNK
     Route: 042
     Dates: start: 20050720, end: 20060719
  5. TS 1 [Suspect]
     Indication: THYMOMA MALIGNANT
     Dosage: 80 G, UNK
     Route: 048
     Dates: start: 20050402, end: 20060719

REACTIONS (27)
  - ANAEMIA [None]
  - BIOPSY [None]
  - BLOOD CREATININE INCREASED [None]
  - BLOOD GLUCOSE INCREASED [None]
  - BLOOD UREA INCREASED [None]
  - CONDITION AGGRAVATED [None]
  - DIALYSIS [None]
  - DYSPNOEA [None]
  - FATIGUE [None]
  - GENERAL PHYSICAL HEALTH DETERIORATION [None]
  - HAEMATOCRIT DECREASED [None]
  - HAEMOGLOBIN DECREASED [None]
  - INTERSTITIAL LUNG DISEASE [None]
  - MALAISE [None]
  - METASTASES TO LUNG [None]
  - NEPHRITIS INTERSTITIAL [None]
  - NEPHROSCLEROSIS [None]
  - OLIGURIA [None]
  - PERICARDIAL EFFUSION [None]
  - PLEURAL EFFUSION [None]
  - PULMONARY OEDEMA [None]
  - RED BLOOD CELL COUNT DECREASED [None]
  - RENAL FAILURE [None]
  - RENAL IMPAIRMENT [None]
  - RESPIRATORY FAILURE [None]
  - THYMIC CANCER METASTATIC [None]
  - WHITE BLOOD CELL COUNT INCREASED [None]
